FAERS Safety Report 13273063 (Version 9)
Quarter: 2018Q3

REPORT INFORMATION
  Report Type: Spontaneous
  Country: CA (occurrence: CA)
  Receive Date: 20170227
  Receipt Date: 20180820
  Transmission Date: 20181010
  Serious: Yes (Other)
  Sender: FDA-Public Use
  Company Number: CA-PFIZER INC-2017078624

PATIENT
  Age: 64 Year
  Sex: Female

DRUGS (15)
  1. VITAMIN B12 [Concomitant]
     Active Substance: CYANOCOBALAMIN
     Dosage: 12.5 MG, ONCE DAILY
  2. CALCIUM [Concomitant]
     Active Substance: CALCIUM
     Dosage: 1 TABLETS 1X/DAY
  3. CRANBERRY CONCENTRATE [Concomitant]
     Active Substance: CRANBERRY CONCENTRATE
     Dosage: 500 MG, ONCE DAILY
  4. IBRANCE [Suspect]
     Active Substance: PALBOCICLIB
     Indication: BREAST CANCER
     Dosage: 125 MG, CYCLIC( 1 CAPSULE EVERY DAY  FOR 21 DAYS, THEN 7 DAYS OFF)
     Route: 048
     Dates: start: 20170110, end: 20170124
  5. FASLODEX [Concomitant]
     Active Substance: FULVESTRANT
     Dosage: UNK
  6. ZOMETA [Concomitant]
     Active Substance: ZOLEDRONIC ACID
     Dosage: 4 MG (1 VIAL), EVERY 3 MONTHS
  7. VITAMIN D [Concomitant]
     Active Substance: CHOLECALCIFEROL
     Dosage: 1000 IU, TWICE DAILY
  8. VITAMIN C [Concomitant]
     Active Substance: ASCORBIC ACID
     Dosage: TWO TABLETS, ONCE DAILY
  9. IBRANCE [Suspect]
     Active Substance: PALBOCICLIB
     Dosage: 125MG, CYCLIC (1 CAPSULE EVERY 21/28 DAYS)
     Route: 048
  10. IBRANCE [Suspect]
     Active Substance: PALBOCICLIB
     Dosage: 75 MG, CYCLIC (1 CAPSULE EVERY 21/28 DAYS)
     Route: 048
     Dates: start: 201704
  11. CALCIUM [Concomitant]
     Active Substance: CALCIUM
     Dosage: TWO TABLETS, ONCE DAILY
  12. DOCUSATE SODIUM. [Concomitant]
     Active Substance: DOCUSATE SODIUM
     Dosage: 100 MG, AS NEEDED
  13. IBRANCE [Suspect]
     Active Substance: PALBOCICLIB
     Dosage: 100 MG, CYCLIC (1 CAPSULE 21/28 DAYS)
     Route: 048
     Dates: start: 201702
  14. IBRANCE [Suspect]
     Active Substance: PALBOCICLIB
     Dosage: 75 MG 21 DAYS ON AND 14 DAYS OFF
     Dates: start: 20171122
  15. B6 [Concomitant]
     Active Substance: PYRIDOXINE HYDROCHLORIDE
     Dosage: 50 MG, ONCE DAILY

REACTIONS (3)
  - Urinary tract infection [Unknown]
  - Cataract [Unknown]
  - Full blood count decreased [Not Recovered/Not Resolved]

NARRATIVE: CASE EVENT DATE: 2017
